FAERS Safety Report 9470628 (Version 2)
Quarter: 2013Q3

REPORT INFORMATION
  Report Type: Spontaneous
  Country: US (occurrence: US)
  Receive Date: 20130822
  Receipt Date: 20130917
  Transmission Date: 20140515
  Serious: No
  Sender: FDA-Public Use
  Company Number: US-PFIZER INC-2013242646

PATIENT
  Age: 74 Year
  Sex: Female
  Weight: 66 kg

DRUGS (5)
  1. NICOTROL INHALER [Suspect]
     Indication: SMOKING CESSATION THERAPY
     Dosage: 6 CART PER DAY (DURATION OF TREATMENT: 1 DAY)
     Dates: start: 20130814, end: 20130815
  2. EFFEXOR XR [Suspect]
     Indication: SMOKING CESSATION THERAPY
     Dosage: 150 MG, DAILY
  3. EFFEXOR XR [Suspect]
     Indication: MYALGIA
  4. NORVASC [Concomitant]
     Indication: HYPERTENSION
     Dosage: 5 MG, DAILY
  5. PRAVACHOL [Concomitant]
     Indication: BLOOD CHOLESTEROL INCREASED
     Dosage: 20 MG, DAILY

REACTIONS (6)
  - Throat irritation [Recovered/Resolved]
  - Drug intolerance [Unknown]
  - Poor quality drug administered [Recovered/Resolved]
  - Product quality issue [Recovered/Resolved]
  - Drug ineffective [Unknown]
  - Off label use [Unknown]
